FAERS Safety Report 10590379 (Version 2)
Quarter: 2014Q4

REPORT INFORMATION
  Report Type: Spontaneous
  Country: US (occurrence: US)
  Receive Date: 20141118
  Receipt Date: 20141226
  Transmission Date: 20150529
  Serious: Yes (Hospitalization, Other)
  Sender: FDA-Public Use
  Company Number: US-BAYER-2014-167890

PATIENT
  Age: 27 Year
  Sex: Female
  Weight: 58.96 kg

DRUGS (1)
  1. MIRENA [Suspect]
     Active Substance: LEVONORGESTREL
     Indication: CONTRACEPTION
     Dosage: 20 MCG/24HR, CONT
     Route: 015
     Dates: start: 20111202, end: 20121217

REACTIONS (9)
  - Procedural pain [None]
  - Pelvic pain [None]
  - Injury [None]
  - Anxiety [None]
  - Depression [None]
  - Embedded device [None]
  - Emotional distress [None]
  - Menstruation irregular [None]
  - Pain [None]

NARRATIVE: CASE EVENT DATE: 201212
